FAERS Safety Report 19970484 (Version 1)
Quarter: 2021Q4

REPORT INFORMATION
  Report Type: Spontaneous
  Country: US (occurrence: US)
  Receive Date: 20211019
  Receipt Date: 20211019
  Transmission Date: 20220303
  Serious: No
  Sender: FDA-Public Use
  Company Number: 2021A775800

PATIENT

DRUGS (1)
  1. PRILOSEC OTC [Suspect]
     Active Substance: OMEPRAZOLE MAGNESIUM
     Dosage: 4 TABLET, DAILY (2 IN THE MORNING AND 2 12 HOURS LATER TAKING... FOR MANY YEARS)
     Route: 048

REACTIONS (5)
  - Skin laceration [Unknown]
  - Product package associated injury [Unknown]
  - Incorrect product administration duration [Unknown]
  - Overdose [Unknown]
  - Product packaging difficult to open [Unknown]
